FAERS Safety Report 14481113 (Version 2)
Quarter: 2018Q1

REPORT INFORMATION
  Report Type: Spontaneous
  Country: US (occurrence: US)
  Receive Date: 20180202
  Receipt Date: 20180306
  Transmission Date: 20180509
  Serious: Yes (Other)
  Sender: FDA-Public Use
  Company Number: US-GLAXOSMITHKLINE-US2018014537

PATIENT
  Sex: Female

DRUGS (2)
  1. EXCEDRIN MIGRAINE [Suspect]
     Active Substance: ACETAMINOPHEN\ASPIRIN\CAFFEINE
     Indication: PAIN IN EXTREMITY
     Dosage: UNK UNK, BID
  2. EXCEDRIN MIGRAINE [Suspect]
     Active Substance: ACETAMINOPHEN\ASPIRIN\CAFFEINE
     Indication: MIGRAINE

REACTIONS (6)
  - Drug effective for unapproved indication [Unknown]
  - Drug ineffective [Unknown]
  - Gastric ulcer [Unknown]
  - Underdose [Unknown]
  - Gastric haemorrhage [Unknown]
  - Product use in unapproved indication [Unknown]
